FAERS Safety Report 20361653 (Version 1)
Quarter: 2022Q1

REPORT INFORMATION
  Report Type: Report from Study
  Country: BR (occurrence: BR)
  Receive Date: 20220121
  Receipt Date: 20220121
  Transmission Date: 20220423
  Serious: Yes (Death, Other)
  Sender: FDA-Public Use
  Company Number: BR-BoehringerIngelheim-2022-BI-108065

PATIENT
  Age: 73 Year
  Sex: Female
  Weight: 51 kg

DRUGS (2)
  1. OFEV [Suspect]
     Active Substance: NINTEDANIB
     Indication: Pulmonary fibrosis
     Dates: start: 20200506
  2. OFEV [Suspect]
     Active Substance: NINTEDANIB
     Dates: end: 20210819

REACTIONS (4)
  - Respiratory failure [Fatal]
  - Pulmonary fibrosis [Unknown]
  - Diarrhoea [Unknown]
  - Nausea [Unknown]
